FAERS Safety Report 7072751-4 (Version None)
Quarter: 2010Q4

REPORT INFORMATION
  Report Type: 
  Country: None (occurrence: None)
  Receive Date: 20101029
  Receipt Date: 20100309
  Transmission Date: 20110411
  Serious: No
  Sender: FDA-Public Use
  Company Number: A0849161A

PATIENT
  Age: 75 Year
  Sex: Female

DRUGS (3)
  1. ADVAIR DISKUS 100/50 [Suspect]
     Dosage: 1PUFF TWICE PER DAY
     Route: 055
     Dates: start: 20100205
  2. ALBUTEROL INHALER [Concomitant]
  3. SINGULAIR [Concomitant]

REACTIONS (2)
  - GINGIVAL SWELLING [None]
  - GLOSSODYNIA [None]
